FAERS Safety Report 5476142-9 (Version None)
Quarter: 2007Q4

REPORT INFORMATION
  Report Type: 
  Country: None (occurrence: None)
  Receive Date: 20071003
  Receipt Date: 20070926
  Transmission Date: 20080405
  Serious: Yes (Other)
  Sender: FDA-Public Use
  Company Number: US-JNJFOC-20071000115

PATIENT
  Age: 67 Year
  Sex: Female

DRUGS (2)
  1. LEVAQUIN [Suspect]
     Indication: INFECTION
     Route: 065
  2. FLAGYL [Suspect]
     Indication: INFECTION
     Route: 065

REACTIONS (1)
  - BLOOD PRESSURE DECREASED [None]
